FAERS Safety Report 8087391-8 (Version None)
Quarter: 2012Q1

REPORT INFORMATION
  Report Type: 
  Country: None (occurrence: None)
  Receive Date: 20120128
  Receipt Date: 20110509
  Transmission Date: 20120608
  Serious: No
  Sender: FDA-Public Use
  Company Number: US-ABBOTT-11P-163-0724312-00

PATIENT
  Sex: Female

DRUGS (9)
  1. PROTONIX [Concomitant]
     Indication: GASTROOESOPHAGEAL REFLUX DISEASE
  2. VICODIN [Concomitant]
     Indication: PAIN MANAGEMENT
  3. PROTONIX [Concomitant]
     Indication: GASTRIC ULCER
  4. DMSO BLADDER TREATMENT WITH PREDNISONE [Concomitant]
     Indication: CYSTITIS INTERSTITIAL
  5. HUMIRA [Suspect]
     Indication: RHEUMATOID ARTHRITIS
     Route: 058
     Dates: start: 20100901
  6. ELAVIL [Concomitant]
     Indication: PAIN MANAGEMENT
  7. FOLIC ACID [Concomitant]
     Indication: VITAMIN SUPPLEMENTATION
  8. VITAMIN D [Concomitant]
     Indication: VITAMIN SUPPLEMENTATION
  9. ELAVIL [Concomitant]
     Indication: CYSTITIS INTERSTITIAL

REACTIONS (4)
  - BLOOD GLUCOSE INCREASED [None]
  - NODULE [None]
  - DIABETES MELLITUS [None]
  - BLOOD TRIGLYCERIDES INCREASED [None]
